FAERS Safety Report 17022486 (Version 2)
Quarter: 2019Q4

REPORT INFORMATION
  Report Type: Spontaneous
  Country: DE (occurrence: DE)
  Receive Date: 20191112
  Receipt Date: 20191122
  Transmission Date: 20200122
  Serious: Yes (Hospitalization)
  Sender: FDA-Public Use
  Company Number: DE-MYLANLABS-2019M1107127

PATIENT
  Age: 71 Year
  Sex: Male

DRUGS (5)
  1. TOPIRAMAT [Concomitant]
     Active Substance: TOPIRAMATE
     Dosage: 25 MILLIGRAM, QD
  2. IBUPROFEN. [Concomitant]
     Active Substance: IBUPROFEN
     Dosage: 600 MILLIGRAM, QD
  3. NEUROTRAT FORTE                    /07501901/ [Concomitant]
     Dosage: UNK
  4. COPALIA [Concomitant]
     Active Substance: AMLODIPINE BESYLATE\VALSARTAN
     Dosage: UNK
  5. MINITRAN [Suspect]
     Active Substance: NITROGLYCERIN
     Indication: CORONARY ARTERY DISEASE
     Dosage: 1 DOSAGE FORM, QD
     Route: 062

REACTIONS (4)
  - Disturbance in attention [Recovering/Resolving]
  - Hypotension [Recovering/Resolving]
  - Incorrect dose administered by product [Recovering/Resolving]
  - Tachycardia [Recovering/Resolving]

NARRATIVE: CASE EVENT DATE: 20190430
